FAERS Safety Report 20878366 (Version 2)
Quarter: 2024Q2

REPORT INFORMATION
  Report Type: Report from Study
  Country: CA (occurrence: CA)
  Receive Date: 20220526
  Receipt Date: 20240520
  Transmission Date: 20240716
  Serious: No
  Sender: FDA-Public Use
  Company Number: CA-GLAXOSMITHKLINE-CA2022AMR066208

PATIENT

DRUGS (2)
  1. BELIMUMAB [Suspect]
     Active Substance: BELIMUMAB
     Indication: Systemic lupus erythematosus
     Dosage: 200 MG, WE
     Route: 058
     Dates: start: 20220414
  2. BELIMUMAB [Suspect]
     Active Substance: BELIMUMAB
     Dosage: 200 MG, WE
     Route: 058
     Dates: start: 20220211

REACTIONS (12)
  - Injection site injury [Unknown]
  - Nausea [Recovered/Resolved]
  - Headache [Recovered/Resolved]
  - Injection site discharge [Unknown]
  - Exposure via skin contact [Unknown]
  - Skin lesion [Unknown]
  - Erythema [Unknown]
  - Chills [Unknown]
  - Fatigue [Unknown]
  - Insomnia [Unknown]
  - Chills [Not Recovered/Not Resolved]
  - Product complaint [Unknown]

NARRATIVE: CASE EVENT DATE: 20220401
